FAERS Safety Report 20018847 (Version 1)
Quarter: 2021Q4

REPORT INFORMATION
  Report Type: Spontaneous
  Country: US (occurrence: US)
  Receive Date: 20211101
  Receipt Date: 20211101
  Transmission Date: 20220303
  Serious: No
  Sender: FDA-Public Use
  Company Number: US-TEVA-2021-US-1970624

PATIENT
  Sex: Female

DRUGS (1)
  1. ALBUTEROL SULFATE [Suspect]
     Active Substance: ALBUTEROL SULFATE
     Dosage: FORM OF ADMIN: INHALATION - AEROSOL

REACTIONS (3)
  - Chest discomfort [Unknown]
  - Device delivery system issue [Unknown]
  - Product residue present [Unknown]
